FAERS Safety Report 7671300-7 (Version None)
Quarter: 2011Q3

REPORT INFORMATION
  Report Type: 
  Country: None (occurrence: None)
  Receive Date: 20110809
  Receipt Date: 20110803
  Transmission Date: 20111222
  Serious: No
  Sender: FDA-Public Use
  Company Number: US-ROXANE LABORATORIES, INC.-2011-RO-01105RO

PATIENT
  Age: 81 Year
  Sex: Female

DRUGS (4)
  1. PREDNISONE [Suspect]
     Indication: EMPHYSEMA
  2. PREDNISONE [Suspect]
     Indication: RHEUMATOID ARTHRITIS
     Dosage: 0.5 MG
     Route: 048
  3. METHOTREXATE [Concomitant]
     Indication: RHEUMATOID ARTHRITIS
     Route: 048
  4. PREDNISONE [Suspect]
     Indication: OSTEOARTHRITIS

REACTIONS (1)
  - INCREASED TENDENCY TO BRUISE [None]
